FAERS Safety Report 18589798 (Version 1)
Quarter: 2020Q4

REPORT INFORMATION
  Report Type: Spontaneous
  Country: US (occurrence: US)
  Receive Date: 20201207
  Receipt Date: 20201207
  Transmission Date: 20210114
  Serious: No
  Sender: FDA-Public Use
  Company Number: None

PATIENT
  Age: 72 Year
  Sex: Male
  Weight: 81.6 kg

DRUGS (18)
  1. CALCIUM CARBONATE. [Concomitant]
     Active Substance: CALCIUM CARBONATE
  2. FUROSEMIDE. [Concomitant]
     Active Substance: FUROSEMIDE
  3. SODIUM BICARBONATE. [Concomitant]
     Active Substance: SODIUM BICARBONATE
  4. BAMLANIVIMAB. [Suspect]
     Active Substance: BAMLANIVIMAB
     Indication: COVID-19
     Dosage: ?          OTHER FREQUENCY:ONCE;?
     Route: 041
  5. ASPIRIN. [Concomitant]
     Active Substance: ASPIRIN
  6. CALCITRIOL. [Concomitant]
     Active Substance: CALCITRIOL
  7. METOPROLOL TARTRATE. [Concomitant]
     Active Substance: METOPROLOL TARTRATE
  8. WARFARIN [Concomitant]
     Active Substance: WARFARIN
  9. ALLOPURINOL. [Concomitant]
     Active Substance: ALLOPURINOL
  10. PREDNISONE. [Concomitant]
     Active Substance: PREDNISONE
  11. ZINC. [Concomitant]
     Active Substance: ZINC
     Dates: start: 20201205, end: 20201205
  12. D5W INFUSION [Concomitant]
     Dates: start: 20201205, end: 20201205
  13. DILTIAZEM DRIP [Concomitant]
     Dates: start: 20201204, end: 20201205
  14. LEVOTHYROXINE. [Concomitant]
     Active Substance: LEVOTHYROXINE
  15. NORMAL SALINE FLUID BOLUSES [Concomitant]
     Dates: start: 20201204, end: 20201205
  16. TACROLIMUS. [Concomitant]
     Active Substance: TACROLIMUS
  17. VITAMIN C [Concomitant]
     Active Substance: ASCORBIC ACID
     Dates: start: 20201205, end: 20201205
  18. MYCOPHENOLATE [Concomitant]
     Active Substance: MYCOPHENOLIC ACID

REACTIONS (2)
  - Tachycardia [None]
  - Atrial fibrillation [None]

NARRATIVE: CASE EVENT DATE: 20201204
